FAERS Safety Report 8125948-6 (Version None)
Quarter: 2012Q1

REPORT INFORMATION
  Report Type: 
  Country: None (occurrence: None)
  Receive Date: 20120206
  Receipt Date: 20120131
  Transmission Date: 20120608
  Serious: No
  Sender: FDA-Public Use
  Company Number: 2012SP003748

PATIENT
  Age: 27 Year
  Sex: Female

DRUGS (1)
  1. SAPHRIS [Suspect]
     Indication: BIPOLAR I DISORDER
     Dates: start: 20120101, end: 20120101

REACTIONS (2)
  - HYPOAESTHESIA [None]
  - SWOLLEN TONGUE [None]
